FAERS Safety Report 19138345 (Version 2)
Quarter: 2021Q2

REPORT INFORMATION
  Report Type: Other
  Country: CA (occurrence: CA)
  Receive Date: 20210415
  Receipt Date: 20210416
  Transmission Date: 20210717
  Serious: No
  Sender: FDA-Public Use
  Company Number: CA-ROCHE-2799504

PATIENT
  Age: 44 Year
  Sex: Female
  Weight: 90 kg

DRUGS (3)
  1. MOMETASONE [Concomitant]
     Active Substance: MOMETASONE
  2. CANDESARTAN. [Concomitant]
     Active Substance: CANDESARTAN
  3. OCREVUS [Suspect]
     Active Substance: OCRELIZUMAB
     Indication: PRIMARY PROGRESSIVE MULTIPLE SCLEROSIS
     Dosage: 300 MG AT DAY 0 AND DAY 14 THEN 600 MG ONCE IN SIX MONTH
     Route: 042
     Dates: start: 20210324

REACTIONS (9)
  - Nasal congestion [Recovered/Resolved]
  - Fungal infection [Not Recovered/Not Resolved]
  - Infusion related reaction [Unknown]
  - Cough [Unknown]
  - Eating disorder [Recovered/Resolved]
  - Gait disturbance [Recovering/Resolving]
  - Rhinorrhoea [Not Recovered/Not Resolved]
  - Fatigue [Recovering/Resolving]
  - Dizziness [Unknown]

NARRATIVE: CASE EVENT DATE: 20210324
